FAERS Safety Report 10422324 (Version 2)
Quarter: 2014Q3

REPORT INFORMATION
  Report Type: Report from Study
  Country: PL (occurrence: PL)
  Receive Date: 20140901
  Receipt Date: 20140901
  Transmission Date: 20150326
  Serious: Yes (Hospitalization)
  Sender: FDA-Public Use
  Company Number: PHHO2013PL012829

PATIENT

DRUGS (12)
  1. SOLU-MEDROL [Concomitant]
     Active Substance: METHYLPREDNISOLONE SODIUM SUCCINATE
     Indication: MULTIPLE SCLEROSIS RELAPSE
     Dosage: UNK
     Dates: start: 201301, end: 201301
  2. BISOCARD [Suspect]
     Active Substance: BISOPROLOL
     Indication: HEART RATE IRREGULAR
     Dosage: 5 MG, QD
     Route: 048
     Dates: start: 20100903
  3. VENLAFAXINE [Suspect]
     Active Substance: VENLAFAXINE HYDROCHLORIDE
  4. SIRDALUD [Suspect]
     Active Substance: TIZANIDINE
  5. BACLOFEN. [Suspect]
     Active Substance: BACLOFEN
     Indication: MUSCLE SPASTICITY
     Dosage: 10 MG, TID
     Route: 048
     Dates: start: 20110120
  6. DEBRIDAT ^IBRAHIM^ [Concomitant]
     Indication: FLATULENCE
     Dosage: 100 MG, TID
     Route: 048
     Dates: start: 20110814, end: 201301
  7. GILENYA [Suspect]
     Active Substance: FINGOLIMOD HYDROCHLORIDE
     Indication: MULTIPLE SCLEROSIS
     Dosage: 0.5 MG, QD
     Route: 048
     Dates: start: 20090630, end: 20130911
  8. TRIBUX [Suspect]
     Active Substance: TRIMEBUTINE
  9. LERIVON [Suspect]
     Active Substance: MIANSERIN HYDROCHLORIDE
     Indication: AFFECTIVE DISORDER
     Dosage: 30 MG, UNK
     Route: 048
     Dates: start: 20100816
  10. VENLECTINE [Suspect]
     Active Substance: VENLAFAXINE HYDROCHLORIDE
     Indication: AFFECTIVE DISORDER
     Dosage: 150 MG, QD
     Route: 048
     Dates: start: 20110601
  11. ENARENAL [Suspect]
     Active Substance: ENALAPRIL
  12. HYDROXYZINE [Concomitant]
     Active Substance: HYDROXYZINE\HYDROXYZINE HYDROCHLORIDE
     Indication: PRURITUS
     Dosage: 10 MG, QD
     Route: 048
     Dates: start: 20120910, end: 201301

REACTIONS (4)
  - Dermatitis [Recovering/Resolving]
  - Pruritus [None]
  - Pyoderma [None]
  - Multiple sclerosis relapse [None]

NARRATIVE: CASE EVENT DATE: 20130901
